FAERS Safety Report 25174866 (Version 6)
Quarter: 2025Q4

REPORT INFORMATION
  Report Type: Spontaneous
  Country: EU (occurrence: EU)
  Receive Date: 20250408
  Receipt Date: 20251205
  Transmission Date: 20260117
  Serious: Yes (Other)
  Sender: TAKEDA
  Company Number: EU-002147023-NVSC2025CZ048348

PATIENT
  Sex: Female

DRUGS (29)
  1. ICLUSIG [Suspect]
     Active Substance: PONATINIB HYDROCHLORIDE
     Indication: Chronic myeloid leukaemia
     Dosage: 15 MILLIGRAM, QD
     Dates: start: 202401, end: 202402
  2. ICLUSIG [Suspect]
     Active Substance: PONATINIB HYDROCHLORIDE
     Dosage: 45 MILLIGRAM, QD
     Dates: start: 202402, end: 2024
  3. ICLUSIG [Suspect]
     Active Substance: PONATINIB HYDROCHLORIDE
     Dosage: UNK
  4. ICLUSIG [Suspect]
     Active Substance: PONATINIB HYDROCHLORIDE
     Dosage: UNK
  5. ICLUSIG [Suspect]
     Active Substance: PONATINIB HYDROCHLORIDE
     Dosage: UNK
  6. IMATINIB [Suspect]
     Active Substance: IMATINIB
     Indication: Chronic myeloid leukaemia
     Dosage: 400 MILLIGRAM, QD
     Dates: start: 200604
  7. IMATINIB [Suspect]
     Active Substance: IMATINIB
     Dosage: UNK
  8. IMATINIB [Suspect]
     Active Substance: IMATINIB
     Dosage: UNK
  9. IMATINIB [Suspect]
     Active Substance: IMATINIB
     Dosage: UNK
  10. IMATINIB [Suspect]
     Active Substance: IMATINIB
     Dosage: UNK
  11. IMATINIB [Suspect]
     Active Substance: IMATINIB
     Dosage: UNK
  12. IMATINIB [Suspect]
     Active Substance: IMATINIB
     Dosage: 600 MILLIGRAM, QD
     Dates: end: 201003
  13. IMATINIB [Suspect]
     Active Substance: IMATINIB
     Dosage: UNK
  14. IMATINIB [Suspect]
     Active Substance: IMATINIB
     Dosage: UNK, Q3MONTHS
     Dates: start: 2011, end: 201104
  15. IMATINIB [Suspect]
     Active Substance: IMATINIB
     Dosage: UNK, Q3MONTHS
     Dates: end: 201104
  16. IMATINIB [Suspect]
     Active Substance: IMATINIB
     Dosage: 600 MILLIGRAM, QD
     Dates: end: 201007
  17. IMATINIB [Suspect]
     Active Substance: IMATINIB
     Dosage: 600 MILLIGRAM, QD
     Dates: end: 201104
  18. IMATINIB [Suspect]
     Active Substance: IMATINIB
     Dosage: 300 MILLIGRAM
  19. IMATINIB [Suspect]
     Active Substance: IMATINIB
     Dosage: UNK
  20. NILOTINIB [Suspect]
     Active Substance: NILOTINIB
     Indication: Chronic myeloid leukaemia
     Dosage: 600 MILLIGRAM, QD
     Dates: start: 201104
  21. NILOTINIB [Suspect]
     Active Substance: NILOTINIB
     Dosage: UNK
  22. NILOTINIB [Suspect]
     Active Substance: NILOTINIB
     Dosage: 400 MILLIGRAM, QD
     Dates: start: 202005
  23. NILOTINIB [Suspect]
     Active Substance: NILOTINIB
     Dosage: 800 MILLIGRAM, QD
  24. NILOTINIB [Suspect]
     Active Substance: NILOTINIB
     Dosage: UNK
  25. NILOTINIB [Suspect]
     Active Substance: NILOTINIB
     Dosage: 400 MILLIGRAM, QD
     Dates: end: 202401
  26. DASATINIB [Suspect]
     Active Substance: DASATINIB
     Indication: Chronic myeloid leukaemia
     Dosage: 90 MILLIGRAM, QD
     Dates: start: 201306, end: 201602
  27. DASATINIB [Suspect]
     Active Substance: DASATINIB
     Dosage: 70 MILLIGRAM, QD
     Dates: start: 201605, end: 201905
  28. DASATINIB [Suspect]
     Active Substance: DASATINIB
     Dosage: UNK
  29. ASCIMINIB [Suspect]
     Active Substance: ASCIMINIB
     Indication: Chronic myeloid leukaemia
     Dosage: 160 MILLIGRAM, QD
     Dates: start: 202404

REACTIONS (10)
  - Peritonitis [Unknown]
  - Malignant neoplasm progression [Unknown]
  - Chronic myeloid leukaemia [Unknown]
  - Condition aggravated [Unknown]
  - Gastrointestinal tract irritation [Recovered/Resolved]
  - Dermatitis allergic [Unknown]
  - Therapeutic response shortened [Unknown]
  - Nausea [Unknown]
  - Vomiting [Unknown]
  - Hypertension [Recovered/Resolved]

NARRATIVE: CASE EVENT DATE: 20240201
